FAERS Safety Report 5835324-4 (Version None)
Quarter: 2008Q3

REPORT INFORMATION
  Report Type: 
  Country: None (occurrence: None)
  Receive Date: 20080804
  Receipt Date: 20080721
  Transmission Date: 20090109
  Serious: Yes (Hospitalization)
  Sender: FDA-Public Use
  Company Number: 2008MB000084

PATIENT
  Age: 74 Year
  Sex: Female

DRUGS (10)
  1. KEFLEX [Suspect]
     Indication: DRUG USE FOR UNKNOWN INDICATION
     Dates: start: 20071024, end: 20071026
  2. EXENATIDE (EXENATIDE) [Suspect]
     Indication: DRUG USE FOR UNKNOWN INDICATION
  3. LYRICA [Concomitant]
  4. VITAMIN B-12 [Concomitant]
  5. ASPIRIN [Concomitant]
  6. CALCIUM [Concomitant]
  7. GLIPIZIDE [Concomitant]
  8. FLUOXETINE [Concomitant]
  9. GLUCOPHAGE [Concomitant]
  10. VYTORIN [Concomitant]

REACTIONS (8)
  - ACUTE SINUSITIS [None]
  - DEHYDRATION [None]
  - DYSPHAGIA [None]
  - DYSPNOEA [None]
  - EATING DISORDER [None]
  - GASTROENTERITIS [None]
  - RENAL FAILURE ACUTE [None]
  - URINARY TRACT INFECTION [None]
